FAERS Safety Report 7600183-6 (Version None)
Quarter: 2011Q3

REPORT INFORMATION
  Report Type: 
  Country: None (occurrence: None)
  Receive Date: 20110711
  Receipt Date: 20110707
  Transmission Date: 20111222
  Serious: Yes (Death, Hospitalization)
  Sender: FDA-Public Use
  Company Number: PHHY2011AR61005

PATIENT
  Sex: Female

DRUGS (1)
  1. EXELON [Suspect]
     Dosage: UNK UKN, UNK
     Dates: start: 20101124

REACTIONS (4)
  - NASOPHARYNGITIS [None]
  - COUGH [None]
  - PNEUMONIA [None]
  - CARDIO-RESPIRATORY ARREST [None]
